FAERS Safety Report 6280450-1 (Version None)
Quarter: 2009Q3

REPORT INFORMATION
  Report Type: 
  Country: None (occurrence: None)
  Receive Date: 20090724
  Receipt Date: 20090109
  Transmission Date: 20100115
  Serious: Yes (Hospitalization)
  Sender: FDA-Public Use
  Company Number: A0716227A

PATIENT
  Age: 60 Year
  Sex: Male
  Weight: 120.5 kg

DRUGS (7)
  1. AVANDIA [Suspect]
     Dosage: 4MG IN THE MORNING
     Route: 048
     Dates: start: 20031001, end: 20060301
  2. ALLOPURINOL [Concomitant]
  3. FOLIC ACID [Concomitant]
  4. GEMFIBROZIL [Concomitant]
  5. INSULIN [Concomitant]
  6. MINOXIDIL [Concomitant]
  7. OMEPRAZOLE [Concomitant]

REACTIONS (2)
  - CARDIAC FAILURE [None]
  - CARDIAC FAILURE CONGESTIVE [None]
